FAERS Safety Report 5561371-6 (Version None)
Quarter: 2007Q4

REPORT INFORMATION
  Report Type: 
  Country: None (occurrence: None)
  Receive Date: 20071215
  Receipt Date: 20071023
  Transmission Date: 20080405
  Serious: No
  Sender: FDA-Public Use
  Company Number: US-AMGEN-KDL247114

PATIENT
  Sex: Male
  Weight: 102.2 kg

DRUGS (7)
  1. ENBREL [Suspect]
     Indication: PSORIASIS
     Route: 058
     Dates: start: 20070831
  2. ACCUPRIL [Concomitant]
  3. COREG [Concomitant]
  4. PLAVIX [Concomitant]
  5. LIPITOR [Concomitant]
  6. NEXIUM [Concomitant]
  7. FISH OIL [Concomitant]

REACTIONS (2)
  - DRUG INEFFECTIVE [None]
  - HEADACHE [None]
